FAERS Safety Report 16247032 (Version 1)
Quarter: 2019Q2

REPORT INFORMATION
  Report Type: Spontaneous
  Country: PT (occurrence: PT)
  Receive Date: 20190427
  Receipt Date: 20190427
  Transmission Date: 20190711
  Serious: Yes (Life-Threatening)
  Sender: FDA-Public Use
  Company Number: PT-TEVA-2019-PT-1042353

PATIENT
  Sex: Female

DRUGS (1)
  1. METHOTREXATE. [Suspect]
     Active Substance: METHOTREXATE
     Indication: ACUTE LYMPHOCYTIC LEUKAEMIA
     Dosage: 5G / M2 IN 24-HOUR INTRAVENOUS INFUSION ON 11/17/2017 AND 12 MG INTRATHECALLY ON 11/18/2017
     Route: 042
     Dates: start: 201711

REACTIONS (2)
  - Cerebral ischaemia [Unknown]
  - Hemiparesis [Unknown]

NARRATIVE: CASE EVENT DATE: 2017
